FAERS Safety Report 9440184 (Version 4)
Quarter: 2014Q1

REPORT INFORMATION
  Report Type: Spontaneous
  Country: AU (occurrence: AU)
  Receive Date: 20130805
  Receipt Date: 20140203
  Transmission Date: 20141002
  Serious: Yes (Other)
  Sender: FDA-Public Use
  Company Number: PHHY2013AU081992

PATIENT
  Sex: Female

DRUGS (2)
  1. FEMARA [Suspect]
     Indication: BREAST CANCER METASTATIC
     Dosage: UNK UKN, UNK
     Route: 048
     Dates: start: 20130522
  2. DEXAMETHASONE [Concomitant]
     Dosage: UNK UKN, UNK

REACTIONS (9)
  - Brain mass [Unknown]
  - Nervous system disorder [Unknown]
  - Pulmonary mass [Unknown]
  - Brain oedema [Unknown]
  - Metastases to spine [Unknown]
  - Breast cancer metastatic [Unknown]
  - Malignant neoplasm progression [Unknown]
  - Breast cancer recurrent [Unknown]
  - Discomfort [Unknown]
